FAERS Safety Report 14849778 (Version 2)
Quarter: 2019Q2

REPORT INFORMATION
  Report Type: Spontaneous
  Country: US (occurrence: US)
  Receive Date: 20180504
  Receipt Date: 20190516
  Transmission Date: 20190711
  Serious: Yes (Death, Hospitalization, Other)
  Sender: FDA-Public Use
  Company Number: US-TARO-2017TAR01066

PATIENT
  Age: 68 Year
  Sex: Male
  Weight: 58.05 kg

DRUGS (11)
  1. BENAZEPRIL HCL [Concomitant]
     Active Substance: BENAZEPRIL HYDROCHLORIDE
     Dosage: 10 MG, 1X/DAY
  2. LEXAPRO [Concomitant]
     Active Substance: ESCITALOPRAM OXALATE
     Dosage: 0.5 MG, 1X/DAY
  3. ELIQUIS [Concomitant]
     Active Substance: APIXABAN
     Dosage: 5 MG, 1X/DAY
  4. ASPIRIN. [Concomitant]
     Active Substance: ASPIRIN
     Dosage: 81 MG, 1X/DAY
  5. CARVEDILOL. [Concomitant]
     Active Substance: CARVEDILOL
     Dosage: 3.125 MG, 2X/DAY
  6. AMIODARONE HCL TABLET 200 MG [Suspect]
     Active Substance: AMIODARONE HYDROCHLORIDE
     Indication: ATRIAL FIBRILLATION
     Dosage: 400 MG, 2X/DAY IN THE MORNING AND EVENING
     Route: 048
     Dates: start: 20171016, end: 20171207
  7. AMLODIPINE [Concomitant]
     Active Substance: AMLODIPINE BESYLATE
     Dosage: 5 MG, 1X/DAY
  8. UNSPECIFIED MEDICATIONS [Suspect]
     Active Substance: UNSPECIFIED INGREDIENT
     Indication: ACUTE RESPIRATORY DISTRESS SYNDROME
     Dosage: UNK
     Dates: end: 20171218
  9. UNSPECIFIED MEDICATIONS [Suspect]
     Active Substance: UNSPECIFIED INGREDIENT
     Indication: INTERSTITIAL LUNG DISEASE
  10. ATORVASTATIN [Concomitant]
     Active Substance: ATORVASTATIN
     Dosage: 40 MG, 1X/DAY
  11. MELATONIN [Concomitant]
     Active Substance: MELATONIN
     Dosage: UNK, 1X/DAY AT NIGHT

REACTIONS (19)
  - Renal injury [Recovered/Resolved]
  - Oedema [Recovered/Resolved]
  - Pulmonary fibrosis [Recovered/Resolved]
  - Choking [Recovered/Resolved]
  - Abdominal pain [Recovered/Resolved]
  - Interstitial lung disease [Fatal]
  - Liver injury [Recovered/Resolved]
  - Pneumonia [Recovered/Resolved]
  - Pyrexia [Recovered/Resolved]
  - Rash [Recovered/Resolved]
  - Lung disorder [Recovered/Resolved]
  - Eye injury [Recovered/Resolved]
  - Off label use [Recovered/Resolved]
  - Unevaluable event [Unknown]
  - Chest pain [Recovered/Resolved]
  - Acute respiratory distress syndrome [Fatal]
  - Urticaria [Recovered/Resolved]
  - Asthenia [Recovered/Resolved]
  - Lung cyst [Recovered/Resolved]

NARRATIVE: CASE EVENT DATE: 2017
